FAERS Safety Report 11126629 (Version 7)
Quarter: 2016Q2

REPORT INFORMATION
  Report Type: Spontaneous
  Country: US (occurrence: US)
  Receive Date: 20150520
  Receipt Date: 20160623
  Transmission Date: 20160815
  Serious: Yes (Hospitalization, Other)
  Sender: FDA-Public Use
  Company Number: US-PFIZER INC-2015167376

PATIENT
  Age: 63 Year
  Sex: Male
  Weight: 145 kg

DRUGS (20)
  1. GLIPIZIDE. [Concomitant]
     Active Substance: GLIPIZIDE
     Indication: DIABETES MELLITUS
  2. LYRICA [Suspect]
     Active Substance: PREGABALIN
     Indication: NEUROPATHY PERIPHERAL
     Dosage: 200 MG, 3X/DAY
     Dates: start: 1986
  3. LYRICA [Suspect]
     Active Substance: PREGABALIN
     Dosage: 200 MG, 3X/DAY
     Dates: start: 2006
  4. TRAMADOL. [Concomitant]
     Active Substance: TRAMADOL
     Dosage: 50 MG, UNK
     Dates: start: 2015
  5. SIMVASTATIN. [Concomitant]
     Active Substance: SIMVASTATIN
     Indication: BLOOD CHOLESTEROL ABNORMAL
     Dosage: 80 MG A DAY
     Dates: start: 2013
  6. BUTALBITAL, CAFFEINE, PARACETAMOL [Concomitant]
     Indication: HEADACHE
     Dosage: 1 DF, 2X/DAY (BUTALBITAL- 50, ACETAMINOPHEN- 325)
     Dates: start: 2008
  7. TAMSULOSIN [Concomitant]
     Active Substance: TAMSULOSIN
     Indication: URINARY TRACT DISORDER
     Dosage: UNK, 2X/DAY
     Dates: start: 2013
  8. ZOFRAN [Concomitant]
     Active Substance: ONDANSETRON HYDROCHLORIDE
     Dosage: UNK, AS NEEDED
     Dates: start: 2012
  9. EFFEXOR [Concomitant]
     Active Substance: VENLAFAXINE HYDROCHLORIDE
     Indication: NERVOUS SYSTEM DISORDER
     Dosage: 75 MG, 3X/DAY
     Dates: start: 1986
  10. EFFEXOR [Concomitant]
     Active Substance: VENLAFAXINE HYDROCHLORIDE
     Indication: STRESS
     Dosage: UNK, 3X/DAY
     Dates: start: 2008
  11. CARVEDILOL. [Concomitant]
     Active Substance: CARVEDILOL
     Indication: HYPERTENSION
     Dosage: UNK, 1X/DAY
     Dates: start: 2013
  12. CLONIDINE. [Concomitant]
     Active Substance: CLONIDINE
     Indication: BLOOD PRESSURE ABNORMAL
     Dosage: UNK
  13. EFFEXOR [Concomitant]
     Active Substance: VENLAFAXINE HYDROCHLORIDE
     Indication: TENSION
  14. METFORMIN HCL [Concomitant]
     Active Substance: METFORMIN HYDROCHLORIDE
     Indication: BLOOD GLUCOSE ABNORMAL
     Dosage: 1000 MG A DAY
     Dates: start: 2014
  15. POTASSIUM [Concomitant]
     Active Substance: POTASSIUM
     Dosage: 20 MG A DAY
     Dates: start: 2012
  16. GLIPIZIDE. [Concomitant]
     Active Substance: GLIPIZIDE
     Indication: BLOOD GLUCOSE ABNORMAL
     Dosage: 10 MG, 2X/DAY
     Dates: start: 2014
  17. METFORMIN HCL [Concomitant]
     Active Substance: METFORMIN HYDROCHLORIDE
     Indication: DIABETES MELLITUS
  18. LOSARTAN. [Concomitant]
     Active Substance: LOSARTAN
     Indication: BLOOD PRESSURE ABNORMAL
     Dosage: UNK
  19. LYRICA [Suspect]
     Active Substance: PREGABALIN
     Indication: DIABETIC NEUROPATHY
     Dosage: 200 MG, 3X/DAY
  20. LYRICA [Suspect]
     Active Substance: PREGABALIN
     Dosage: 100 MG, 3X/DAY
     Route: 048
     Dates: start: 20160609

REACTIONS (15)
  - Meningitis [Unknown]
  - Foot deformity [Unknown]
  - Muscle spasms [Unknown]
  - Peroneal nerve palsy [Unknown]
  - Pneumonia [Unknown]
  - Herpes zoster [Recovered/Resolved]
  - Malaise [Recovered/Resolved]
  - Dysstasia [Unknown]
  - Diabetes mellitus [Not Recovered/Not Resolved]
  - Pain [Unknown]
  - Hypertension [Recovered/Resolved]
  - Chronic obstructive pulmonary disease [Not Recovered/Not Resolved]
  - Knee deformity [Unknown]
  - Influenza [Recovered/Resolved]
  - Limb injury [Not Recovered/Not Resolved]

NARRATIVE: CASE EVENT DATE: 2003
